FAERS Safety Report 10647511 (Version 1)
Quarter: 2014Q4

REPORT INFORMATION
  Report Type: Spontaneous
  Country: IE (occurrence: IE)
  Receive Date: 20141211
  Receipt Date: 20141211
  Transmission Date: 20150529
  Serious: Yes (Other)
  Sender: FDA-Public Use
  Company Number: IE-TAKEDA-2014TUS013863

PATIENT
  Sex: Male

DRUGS (1)
  1. ADENURIC [Suspect]
     Active Substance: FEBUXOSTAT
     Indication: GOUT
     Dosage: UNK
     Route: 065
     Dates: start: 20141129

REACTIONS (3)
  - Nightmare [Unknown]
  - Hallucination [Unknown]
  - Night sweats [Unknown]

NARRATIVE: CASE EVENT DATE: 20141129
